FAERS Safety Report 9632706 (Version 2)
Quarter: 2013Q4

REPORT INFORMATION
  Report Type: Report from Study
  Country: CH (occurrence: CH)
  Receive Date: 20131018
  Receipt Date: 20131106
  Transmission Date: 20140711
  Serious: Yes (Death, Other)
  Sender: FDA-Public Use
  Company Number: CH-ROCHE-1289881

PATIENT
  Age: 76 Year
  Sex: Male

DRUGS (3)
  1. ALTEPLASE [Suspect]
     Indication: PULMONARY EMBOLISM
     Dosage: AS A BOLUS
     Route: 042
  2. ALTEPLASE [Suspect]
     Dosage: AS PERFUSION OVER 2 H
     Route: 042
  3. HEPARIN [Suspect]
     Indication: PULMONARY EMBOLISM
     Dosage: ONE DOSE, FOLLOWED BY BOLUSES TO OBTAIN AN ACTIVATED CLOTTING TIME OF 300 SEC.
     Route: 042

REACTIONS (4)
  - Brain oedema [Fatal]
  - Brain hypoxia [Fatal]
  - Drug ineffective [Unknown]
  - Contraindication to medical treatment [Unknown]
